FAERS Safety Report 19111843 (Version 3)
Quarter: 2021Q2

REPORT INFORMATION
  Report Type: Spontaneous
  Country: US (occurrence: US)
  Receive Date: 20210408
  Receipt Date: 20210609
  Transmission Date: 20210717
  Serious: Yes (Other)
  Sender: FDA-Public Use
  Company Number: US-JNJFOC-20210409813

PATIENT
  Sex: Male

DRUGS (2)
  1. COVID?19 VACCINE [Concomitant]
     Dosage: MODERNA VACCINE
  2. XARELTO [Suspect]
     Active Substance: RIVAROXABAN
     Indication: PRODUCT USED FOR UNKNOWN INDICATION
     Route: 048

REACTIONS (2)
  - Atrial fibrillation [Recovering/Resolving]
  - Cerebrovascular accident [Unknown]
